FAERS Safety Report 7966750 (Version 2)
Quarter: 2012Q4

REPORT INFORMATION
  Report Type: Report from Study
  Country: FR (occurrence: FR)
  Receive Date: 20110531
  Receipt Date: 20121231
  Transmission Date: 20130627
  Serious: Yes (Life-Threatening)
  Sender: FDA-Public Use
  Company Number: FR-MILLENNIUM PHARMACEUTICALS, INC.-2011-02259

PATIENT

DRUGS (1)
  1. VELCADE [Suspect]
     Indication: WALDENSTROM^S MACROGLOBULINAEMIA
     Dosage: UNK
     Route: 042
     Dates: start: 20101207, end: 20110317

REACTIONS (1)
  - Ileus paralytic [Not Recovered/Not Resolved]
